FAERS Safety Report 19436554 (Version 3)
Quarter: 2021Q3

REPORT INFORMATION
  Report Type: Report from Study
  Country: US (occurrence: US)
  Receive Date: 20210618
  Receipt Date: 20210705
  Transmission Date: 20211014
  Serious: Yes (Hospitalization, Other)
  Sender: FDA-Public Use
  Company Number: US-BRISTOL-MYERS SQUIBB COMPANY-BMS-2021-057259

PATIENT
  Age: 78 Year
  Sex: Female
  Weight: 75.5 kg

DRUGS (3)
  1. NIVOLUMAB [Suspect]
     Active Substance: NIVOLUMAB
     Indication: RENAL CELL CARCINOMA
     Dosage: 229.5 MILLIGRAM
     Route: 065
     Dates: start: 20210419, end: 20210426
  2. NIVOLUMAB [Suspect]
     Active Substance: NIVOLUMAB
     Dosage: 114.75 MILLIGRAM
     Route: 065
     Dates: start: 20210525, end: 20210525
  3. IPILIMUMAB [Suspect]
     Active Substance: IPILIMUMAB
     Indication: RENAL CELL CARCINOMA
     Dosage: 76.5 MILLIGRAM
     Route: 065
     Dates: start: 20210419, end: 20210426

REACTIONS (3)
  - Hypoxia [Not Recovered/Not Resolved]
  - Pneumonitis [Unknown]
  - Flank pain [Recovered/Resolved]

NARRATIVE: CASE EVENT DATE: 20210425
